FAERS Safety Report 4976129-6 (Version None)
Quarter: 2006Q2

REPORT INFORMATION
  Report Type: 
  Country: None (occurrence: None)
  Receive Date: 20060411
  Receipt Date: 20060403
  Transmission Date: 20061013
  Serious: Yes (Other)
  Sender: FDA-Public Use
  Company Number: 007120

PATIENT
  Age: 60 Year
  Sex: Female

DRUGS (4)
  1. MEDROXYPROGESTERONE ACETATE [Suspect]
     Dosage: ORAL
     Route: 048
     Dates: start: 19951201, end: 19990401
  2. AYGESTIN [Suspect]
     Dosage: ORAL
     Route: 048
     Dates: start: 19990101, end: 20011201
  3. NORETHINDRONE ACETATE (NORETHINDRONE ACETATE) TABLET, 5 MG [Suspect]
     Dosage: ORAL
     Route: 048
     Dates: start: 20020301, end: 20020701
  4. PREMARIN [Suspect]
     Dosage: ORAL
     Route: 048
     Dates: start: 19951201, end: 20020701

REACTIONS (1)
  - BREAST CANCER FEMALE [None]
